FAERS Safety Report 6813883-2 (Version None)
Quarter: 2010Q3

REPORT INFORMATION
  Report Type: 
  Country: None (occurrence: None)
  Receive Date: 20100702
  Receipt Date: 20100623
  Transmission Date: 20110219
  Serious: Yes (Hospitalization)
  Sender: FDA-Public Use
  Company Number: US-BIOGENIDEC-2010BI020926

PATIENT
  Age: 82 Year
  Sex: Female
  Weight: 58 kg

DRUGS (2)
  1. AVONEX [Suspect]
     Indication: MULTIPLE SCLEROSIS
     Route: 030
     Dates: start: 19991223, end: 20030801
  2. AVONEX [Suspect]
     Route: 030
     Dates: start: 20030901

REACTIONS (2)
  - ABASIA [None]
  - MULTIPLE SCLEROSIS [None]
